FAERS Safety Report 9753721 (Version 1)
Quarter: 2013Q4

REPORT INFORMATION
  Report Type: Spontaneous
  Country: US (occurrence: US)
  Receive Date: 20131213
  Receipt Date: 20131213
  Transmission Date: 20140711
  Serious: No
  Sender: FDA-Public Use
  Company Number: US-GILEAD-2010-0026628

PATIENT
  Age: 65 Year
  Sex: Male
  Weight: 137.44 kg

DRUGS (15)
  1. LETAIRIS [Suspect]
     Indication: PULMONARY ARTERIAL HYPERTENSION
     Route: 048
     Dates: start: 20100115
  2. COREG [Concomitant]
  3. NORVASC [Concomitant]
  4. IMDUR [Concomitant]
  5. BUMEX [Concomitant]
  6. HYDRALAZINE [Concomitant]
  7. LIPITOR [Concomitant]
  8. WARFARIN [Concomitant]
  9. PLAVIX [Concomitant]
  10. NOVOLOG [Concomitant]
  11. LANTUS [Concomitant]
  12. AMBIEN [Concomitant]
  13. FERROUS SULFATE [Concomitant]
  14. ALLOPURINOL [Concomitant]
  15. ASA [Concomitant]

REACTIONS (2)
  - Abdominal distension [Recovering/Resolving]
  - Cough [Recovering/Resolving]
